FAERS Safety Report 20565037 (Version 1)
Quarter: 2022Q1

REPORT INFORMATION
  Report Type: Report from Study
  Country: US (occurrence: None)
  Receive Date: 20220308
  Receipt Date: 20220308
  Transmission Date: 20220423
  Serious: No
  Sender: FDA-Public Use
  Company Number: US-Spark Therapeutics, Inc.-US-SPK-20-00089

PATIENT
  Age: 18 Year
  Sex: Male

DRUGS (4)
  1. LUXTURNA [Suspect]
     Active Substance: VORETIGENE NEPARVOVEC-RZYL
     Indication: Leber^s congenital amaurosis
     Route: 031
     Dates: start: 20181212, end: 20181212
  2. LUXTURNA [Suspect]
     Active Substance: VORETIGENE NEPARVOVEC-RZYL
     Route: 031
     Dates: start: 20181226, end: 20181226
  3. LUXTURNA [Suspect]
     Active Substance: VORETIGENE NEPARVOVEC-RZYL
     Indication: Leber^s congenital amaurosis
     Dates: start: 20181212, end: 20181212
  4. LUXTURNA [Suspect]
     Active Substance: VORETIGENE NEPARVOVEC-RZYL
     Dates: start: 20181226, end: 20181226

REACTIONS (1)
  - Retinal depigmentation [Not Recovered/Not Resolved]

NARRATIVE: CASE EVENT DATE: 20200305
